FAERS Safety Report 18041193 (Version 2)
Quarter: 2020Q3

REPORT INFORMATION
  Report Type: Spontaneous
  Country: US (occurrence: US)
  Receive Date: 20200719
  Receipt Date: 20200731
  Transmission Date: 20201103
  Serious: No
  Sender: FDA-Public Use
  Company Number: US-ELI_LILLY_AND_COMPANY-US202007007557

PATIENT
  Sex: Female

DRUGS (2)
  1. FORTEO [Suspect]
     Active Substance: TERIPARATIDE
     Dosage: UNK UNK, DAILY
     Route: 065
  2. FORTEO [Suspect]
     Active Substance: TERIPARATIDE
     Indication: OSTEOPOROSIS
     Dosage: UNK UNK, DAILY
     Route: 065
     Dates: start: 2020

REACTIONS (8)
  - Vertigo [Unknown]
  - Gait disturbance [Unknown]
  - Nausea [Unknown]
  - Migraine [Unknown]
  - Fatigue [Recovering/Resolving]
  - Fall [Unknown]
  - Headache [Unknown]
  - Dizziness [Unknown]
